FAERS Safety Report 20303744 (Version 1)
Quarter: 2022Q1

REPORT INFORMATION
  Report Type: Spontaneous
  Country: US (occurrence: None)
  Receive Date: 20220105
  Receipt Date: 20220105
  Transmission Date: 20220423
  Serious: No
  Sender: FDA-Public Use
  Company Number: None

PATIENT
  Age: 61 Year
  Sex: Female

DRUGS (1)
  1. DEFERASIROX [Suspect]
     Active Substance: DEFERASIROX
     Indication: Thalassaemia
     Dosage: OTHER QUANTITY : 540MG-CHANGED TO 3;?FREQUENCY : DAILY;?
     Route: 048
     Dates: start: 202107

REACTIONS (1)
  - Hepatic enzyme abnormal [None]

NARRATIVE: CASE EVENT DATE: 20211223
